FAERS Safety Report 5476895-X (Version None)
Quarter: 2007Q3

REPORT INFORMATION
  Report Type: 
  Country: None (occurrence: None)
  Receive Date: 20070904
  Receipt Date: 20070730
  Transmission Date: 20080115
  Serious: Yes (Other)
  Sender: FDA-Public Use
  Company Number: PHEH2007US08906

PATIENT
  Age: 73 Year
  Sex: Male

DRUGS (2)
  1. ENABLEX [Suspect]
     Indication: POLLAKIURIA
     Dosage: 7.5 MG, QD, ORAL
     Route: 048
     Dates: start: 20070401
  2. DIOVAN [Suspect]
     Indication: HYPERTENSION
     Dosage: 160 MG, BID, ORAL
     Route: 048
     Dates: start: 20070301

REACTIONS (3)
  - BLOOD PRESSURE INADEQUATELY CONTROLLED [None]
  - DRUG INEFFECTIVE [None]
  - POLLAKIURIA [None]
